FAERS Safety Report 4817558-0 (Version None)
Quarter: 2005Q4

REPORT INFORMATION
  Report Type: 
  Country: None (occurrence: None)
  Receive Date: 20051031
  Receipt Date: 20051024
  Transmission Date: 20060501
  Serious: Yes (Death)
  Sender: FDA-Public Use
  Company Number: 2005128843

PATIENT
  Age: 33 Year
  Sex: Male
  Weight: 94 kg

DRUGS (3)
  1. IDARUBICIN HCL [Suspect]
     Indication: ACUTE MYELOID LEUKAEMIA
     Dosage: 19 MG (19 MG, CYCLICAL - DAILY), INTRAVENOUS
     Route: 042
     Dates: start: 20050823, end: 20050825
  2. ETOPOSIDE [Suspect]
     Indication: ACUTE MYELOID LEUKAEMIA
     Dosage: 160 MG (160 MG, CYCLICAL - DAILY), INTRAVENOUS
     Route: 042
     Dates: start: 20050823, end: 20050829
  3. CYTARABINE [Suspect]
     Indication: ACUTE MYELOID LEUKAEMIA
     Dosage: 12.8 GRAM (6.4 GRAM, CYCLICAL - TWICE DAILY), INTRAVENOUS
     Route: 042
     Dates: start: 20050823, end: 20050829

REACTIONS (14)
  - ANURIA [None]
  - ATRIAL FIBRILLATION [None]
  - CARDIAC ARREST [None]
  - CARDIAC TAMPONADE [None]
  - HAEMATEMESIS [None]
  - HEPATOMEGALY [None]
  - INTERNATIONAL NORMALISED RATIO INCREASED [None]
  - LIVER FUNCTION TEST ABNORMAL [None]
  - MELAENA [None]
  - MULTI-ORGAN FAILURE [None]
  - NEUTROPENIC SEPSIS [None]
  - RESPIRATORY ARREST [None]
  - SEPTIC SHOCK [None]
  - SUPRAVENTRICULAR TACHYCARDIA [None]
